FAERS Safety Report 20720803 (Version 2)
Quarter: 2022Q2

REPORT INFORMATION
  Report Type: Other
  Country: US (occurrence: None)
  Receive Date: 20220418
  Receipt Date: 20220513
  Transmission Date: 20220721
  Serious: Yes (Death, Hospitalization)
  Sender: FDA-Public Use
  Company Number: US-ROCHE-3071015

PATIENT
  Age: 66 Year
  Sex: Female

DRUGS (10)
  1. RITUXAN [Suspect]
     Active Substance: RITUXIMAB
     Indication: Microscopic polyangiitis
     Dosage: INFUSE 618.75MG (2X100 + 1X500) ONCE A WEEK FOR 4 WEEKS TOTAL (DATE OF TREATMENT : 11/MAY/2021, 07/M
     Route: 042
     Dates: start: 2021, end: 20210513
  2. TRAMADOL [Concomitant]
     Active Substance: TRAMADOL
  3. ENTRESTO [Concomitant]
     Active Substance: SACUBITRIL\VALSARTAN
  4. DOXYCYCLINE [Concomitant]
     Active Substance: DOXYCYCLINE
  5. IBUPROFEN [Concomitant]
     Active Substance: IBUPROFEN
  6. METOPROLOL [Concomitant]
     Active Substance: METOPROLOL
  7. DULOXETINE [Concomitant]
     Active Substance: DULOXETINE
  8. ASPIRIN [Concomitant]
     Active Substance: ASPIRIN
  9. FAMOTIDINE [Concomitant]
     Active Substance: FAMOTIDINE
  10. PREDNISONE [Concomitant]
     Active Substance: PREDNISONE

REACTIONS (3)
  - Vasculitis [Fatal]
  - Skin exfoliation [Fatal]
  - Trismus [Fatal]

NARRATIVE: CASE EVENT DATE: 20210520
